FAERS Safety Report 4331533-4 (Version None)
Quarter: 2004Q1

REPORT INFORMATION
  Report Type: 
  Country: None (occurrence: None)
  Receive Date: 20040329
  Receipt Date: 20040316
  Transmission Date: 20041129
  Serious: Yes (Disabling)
  Sender: FDA-Public Use
  Company Number: 2004UW02025

PATIENT
  Age: 53 Year
  Sex: Female
  Weight: 78.9259 kg

DRUGS (5)
  1. NEXIUM [Suspect]
     Indication: GASTRITIS
     Dosage: 40 MG QD PO
     Route: 048
     Dates: start: 20040120, end: 20040125
  2. NEXIUM [Suspect]
     Indication: GASTROOESOPHAGEAL REFLUX DISEASE
     Dosage: 40 MG QD PO
     Route: 048
     Dates: start: 20040120, end: 20040125
  3. SYNTHROID [Concomitant]
  4. LOVASTATIN [Concomitant]
  5. PREMARIN [Concomitant]

REACTIONS (1)
  - ALOPECIA [None]
